FAERS Safety Report 4953064-0 (Version None)
Quarter: 2006Q1

REPORT INFORMATION
  Report Type: 
  Country: None (occurrence: None)
  Receive Date: 20060321
  Receipt Date: 20060303
  Transmission Date: 20060701
  Serious: Yes (Disabling)
  Sender: FDA-Public Use
  Company Number: S06-FRA-00786-01

PATIENT
  Age: 79 Year
  Sex: Female
  Weight: 50 kg

DRUGS (5)
  1. MEMANTINE HCL [Suspect]
     Indication: DEMENTIA ALZHEIMER'S TYPE
     Dosage: 20 MG QD PO
     Route: 048
     Dates: start: 20030121, end: 20030705
  2. ARICEPT [Concomitant]
  3. ASPIRIN [Concomitant]
  4. CLARITIN [Concomitant]
  5. IMOVANE (ZOPICLONE) [Concomitant]

REACTIONS (4)
  - ECZEMA NUMMULAR [None]
  - INSOMNIA [None]
  - PRURITUS [None]
  - ROSACEA [None]
